FAERS Safety Report 10989776 (Version 1)
Quarter: 2015Q1

REPORT INFORMATION
  Report Type: Spontaneous
  Country: US (occurrence: None)
  Receive Date: 20150326
  Receipt Date: 20150326
  Transmission Date: 20150721
  Serious: No
  Sender: FDA-Public Use
  Company Number: 1000074827

PATIENT
  Age: 76 Year
  Sex: Female

DRUGS (2)
  1. LINZESS [Suspect]
     Active Substance: LINACLOTIDE
     Dates: start: 201501, end: 20150223
  2. SOTALOL (120 MILLIGRAM) [Concomitant]

REACTIONS (3)
  - Feeling abnormal [None]
  - Diarrhoea [None]
  - Pruritus [None]

NARRATIVE: CASE EVENT DATE: 201502
